FAERS Safety Report 6491693-6 (Version None)
Quarter: 2009Q4

REPORT INFORMATION
  Report Type: 
  Country: None (occurrence: None)
  Receive Date: 20091211
  Receipt Date: 20091202
  Transmission Date: 20100525
  Serious: Yes (Other)
  Sender: FDA-Public Use
  Company Number: US-AMGEN-QUU372933

PATIENT
  Sex: Male

DRUGS (13)
  1. ENBREL [Suspect]
     Indication: PSORIASIS
     Route: 058
     Dates: start: 20030701, end: 20091001
  2. SORIATANE [Concomitant]
     Route: 048
     Dates: start: 20050201
  3. METHOTREXATE [Concomitant]
     Dates: start: 19960501, end: 20081201
  4. PROZAC [Concomitant]
     Route: 048
  5. COLACE [Concomitant]
  6. SENNA [Concomitant]
  7. IRON [Concomitant]
  8. LOVENOX [Concomitant]
  9. AUGMENTIN [Concomitant]
  10. VITAMIN D3 [Concomitant]
  11. ATIVAN [Concomitant]
  12. MIRALAX [Concomitant]
  13. TYLENOL (CAPLET) [Concomitant]

REACTIONS (13)
  - BACK PAIN [None]
  - CONVULSION [None]
  - FALL [None]
  - HUMERUS FRACTURE [None]
  - INSOMNIA [None]
  - MUSCULOSKELETAL PAIN [None]
  - NIGHT SWEATS [None]
  - PSORIASIS [None]
  - RASH PAPULAR [None]
  - SKIN LACERATION [None]
  - SPINAL COMPRESSION FRACTURE [None]
  - STRESS AT WORK [None]
  - TRANSIENT ISCHAEMIC ATTACK [None]
